FAERS Safety Report 25058953 (Version 1)
Quarter: 2025Q1

REPORT INFORMATION
  Report Type: Spontaneous
  Country: US (occurrence: None)
  Receive Date: 20250307
  Receipt Date: 20250307
  Transmission Date: 20250409
  Serious: No
  Sender: FDA-CTU
  Company Number: None

PATIENT
  Age: 66 Year
  Sex: Male

DRUGS (2)
  1. EVEROLIMUS [Suspect]
     Active Substance: EVEROLIMUS
     Indication: Lung transplant
     Dosage: FREQUENCY : TWICE A DAY;?
     Route: 048
     Dates: start: 20241216, end: 20250227
  2. EVEROLIMUS [Concomitant]
     Active Substance: EVEROLIMUS
     Dates: start: 20241216, end: 20250227

REACTIONS (3)
  - Peripheral swelling [None]
  - Chest discomfort [None]
  - Headache [None]

NARRATIVE: CASE EVENT DATE: 20250307
